FAERS Safety Report 5671509-8 (Version None)
Quarter: 2008Q1

REPORT INFORMATION
  Report Type: 
  Country: None (occurrence: None)
  Receive Date: 20080313
  Receipt Date: 20080228
  Transmission Date: 20080703
  Serious: Yes (Death, Other)
  Sender: FDA-Public Use
  Company Number: 2008US000687

PATIENT
  Sex: Female

DRUGS (1)
  1. AMBISOME [Suspect]
     Indication: ASPERGILLOSIS
     Dosage: 3 MG/KG, UID/QD, IV NOS
     Route: 042
     Dates: start: 20071201, end: 20080114

REACTIONS (2)
  - BLOOD BILIRUBIN INCREASED [None]
  - INFECTION [None]
